FAERS Safety Report 8514748-0 (Version None)
Quarter: 2012Q3

REPORT INFORMATION
  Report Type: 
  Country: None (occurrence: None)
  Receive Date: 20120717
  Receipt Date: 20120709
  Transmission Date: 20120928
  Serious: Yes (Hospitalization)
  Sender: FDA-Public Use
  Company Number: US-BAYER-2012-043654

PATIENT
  Age: 50 Year
  Sex: Female

DRUGS (6)
  1. SYNTHROID [Concomitant]
     Dosage: 100 MG, UNK
     Route: 048
  2. LEVOTHYROXINE SODIUM [Concomitant]
  3. YAZ [Suspect]
     Dosage: UNK
  4. DROSPIRENONE AND ETHINYL ESTRADIOL [Suspect]
     Dosage: UNK
  5. TRICOR [Concomitant]
     Dosage: 400 MG, UNK
     Route: 048
  6. YASMIN [Suspect]
     Indication: CONTRACEPTION
     Dosage: UNK

REACTIONS (2)
  - EMBOLIC STROKE [None]
  - HAEMORRHAGIC TRANSFORMATION STROKE [None]
